FAERS Safety Report 23273554 (Version 9)
Quarter: 2025Q1

REPORT INFORMATION
  Report Type: Spontaneous
  Country: US (occurrence: US)
  Receive Date: 20231207
  Receipt Date: 20250324
  Transmission Date: 20250408
  Serious: No
  Sender: PFIZER
  Company Number: US-PFIZER INC-PV202300194044

PATIENT
  Age: 75 Year
  Sex: Female

DRUGS (3)
  1. IBRANCE [Suspect]
     Active Substance: PALBOCICLIB
     Indication: Breast cancer female
     Route: 048
  2. IBRANCE [Suspect]
     Active Substance: PALBOCICLIB
     Route: 048
     Dates: start: 20231201
  3. LETROZOLE [Concomitant]
     Active Substance: LETROZOLE

REACTIONS (17)
  - Chills [Unknown]
  - Pain [Unknown]
  - Feeling cold [Recovering/Resolving]
  - Red blood cell count decreased [Unknown]
  - Rhinorrhoea [Unknown]
  - Lymphoedema [Unknown]
  - Fall [Unknown]
  - Pain in extremity [Unknown]
  - Limb injury [Unknown]
  - Gait inability [Unknown]
  - Weight bearing difficulty [Unknown]
  - White blood cell count decreased [Unknown]
  - Fatigue [Unknown]
  - Decreased appetite [Unknown]
  - Nausea [Unknown]
  - Asthenia [Unknown]
  - Diarrhoea [Unknown]

NARRATIVE: CASE EVENT DATE: 20240104
